FAERS Safety Report 4686105-9 (Version None)
Quarter: 2005Q2

REPORT INFORMATION
  Report Type: 
  Country: None (occurrence: None)
  Receive Date: 20050609
  Receipt Date: 20050509
  Transmission Date: 20051028
  Serious: Yes (Other)
  Sender: FDA-Public Use
  Company Number: US-GLAXOSMITHKLINE-A0557673A

PATIENT
  Age: 81 Year
  Sex: Female
  Weight: 61 kg

DRUGS (7)
  1. TUMS [Suspect]
     Route: 048
     Dates: end: 20041001
  2. TUMS E-X TABLETS, SUGAR FREE ORANGE [Suspect]
     Route: 048
     Dates: start: 20050501
  3. TUMS SMOOTH DISSOLVE TABLETS, ASSORTED FRUIT [Suspect]
     Route: 048
     Dates: start: 20050501
  4. LESCOL [Suspect]
     Route: 048
  5. NEXIUM [Suspect]
     Route: 048
  6. SYNTHROID [Concomitant]
  7. EYE DROPS [Concomitant]
     Indication: GLAUCOMA

REACTIONS (2)
  - FAECES DISCOLOURED [None]
  - HEPATIC ENZYME INCREASED [None]
